FAERS Safety Report 6843032-6 (Version None)
Quarter: 2010Q3

REPORT INFORMATION
  Report Type: 
  Country: None (occurrence: None)
  Receive Date: 20100709
  Receipt Date: 20100628
  Transmission Date: 20110219
  Serious: No
  Sender: FDA-Public Use
  Company Number: 230122K09CAN

PATIENT
  Sex: Female

DRUGS (3)
  1. REBIF [Suspect]
     Indication: RELAPSING-REMITTING MULTIPLE SCLEROSIS
     Dosage: 44 MCG, 3 IN 1 WK
     Dates: start: 20090219
  2. ANACIN (ANACIN) [Concomitant]
  3. ACETAMINOPHEN [Concomitant]

REACTIONS (4)
  - ARTHRALGIA [None]
  - HEADACHE [None]
  - PYREXIA [None]
  - SEBORRHOEIC KERATOSIS [None]
